FAERS Safety Report 5870824-2 (Version None)
Quarter: 2008Q3

REPORT INFORMATION
  Report Type: 
  Country: None (occurrence: None)
  Receive Date: 20080904
  Receipt Date: 20080822
  Transmission Date: 20090109
  Serious: Yes (Other)
  Sender: FDA-Public Use
  Company Number: BR-ELI_LILLY_AND_COMPANY-BR200808001308

PATIENT
  Sex: Female

DRUGS (8)
  1. CYMBALTA [Suspect]
     Indication: PAIN
     Dosage: 30 MG, UNKNOWN
     Route: 065
     Dates: start: 20080327, end: 20080410
  2. CYMBALTA [Suspect]
     Dosage: 60 MG, DAILY (1/D)
     Route: 065
     Dates: start: 20080411
  3. TRAMADOL HCL [Concomitant]
     Dosage: UNK, UNKNOWN
     Route: 065
  4. SIMVASTATIN [Concomitant]
     Dosage: UNK, UNKNOWN
     Route: 065
  5. BROMAZEPAM [Concomitant]
     Dosage: 1.5 MG, DAILY (1/D)
     Route: 065
  6. BROMAZEPAM [Concomitant]
     Dosage: 6 MG, DAILY (1/D)
     Route: 065
  7. DORFLEX [Concomitant]
     Dosage: UNK, UNKNOWN
     Route: 065
  8. PIROXICAM [Concomitant]
     Dosage: UNK, UNKNOWN
     Route: 065

REACTIONS (3)
  - ARRHYTHMIA [None]
  - CONVULSION [None]
  - LOSS OF CONSCIOUSNESS [None]
